FAERS Safety Report 5934604-1 (Version None)
Quarter: 2008Q4

REPORT INFORMATION
  Report Type: 
  Country: None (occurrence: None)
  Receive Date: 20081029
  Receipt Date: 20081023
  Transmission Date: 20090506
  Serious: Yes (Disabling, Other)
  Sender: FDA-Public Use
  Company Number: GB-PFIZER INC-2008087998

PATIENT
  Sex: Female

DRUGS (3)
  1. CHAMPIX [Suspect]
     Indication: SMOKING CESSATION THERAPY
     Route: 048
     Dates: start: 20081006, end: 20081018
  2. ALL OTHER THERAPEUTIC PRODUCTS [Concomitant]
  3. OTHER RESPIRATORY SYSTEM PRODUCTS [Concomitant]

REACTIONS (5)
  - CHEST DISCOMFORT [None]
  - DYSPNOEA [None]
  - PRODUCTIVE COUGH [None]
  - TOBACCO USER [None]
  - WHEEZING [None]
